FAERS Safety Report 9759545 (Version 1)
Quarter: 2013Q4

REPORT INFORMATION
  Report Type: Spontaneous
  Country: US (occurrence: US)
  Receive Date: 20131216
  Receipt Date: 20131216
  Transmission Date: 20140711
  Serious: Yes (Hospitalization)
  Sender: FDA-Public Use
  Company Number: US-GILEAD-2010-0027711

PATIENT
  Age: 71 Year
  Sex: Female

DRUGS (1)
  1. LETAIRIS [Suspect]
     Indication: PULMONARY ARTERIAL HYPERTENSION
     Route: 048
     Dates: start: 20100212, end: 20100301

REACTIONS (4)
  - Local swelling [Recovered/Resolved]
  - Fluid retention [Recovered/Resolved]
  - Dyspnoea [Recovered/Resolved]
  - Gait disturbance [Recovered/Resolved]
